FAERS Safety Report 19192368 (Version 1)
Quarter: 2021Q2

REPORT INFORMATION
  Report Type: Report from Study
  Country: None (occurrence: US)
  Receive Date: 20210429
  Receipt Date: 20210429
  Transmission Date: 20210717
  Serious: Yes (Disabling, Other)
  Sender: FDA-Public Use
  Company Number: US-ABBVIE-21K-163-3869577-00

PATIENT
  Sex: Male
  Weight: 79.45 kg

DRUGS (3)
  1. HUMIRA [Suspect]
     Active Substance: ADALIMUMAB
     Indication: PSORIATIC ARTHROPATHY
     Dosage: CITRATE FREE
     Route: 058
     Dates: start: 2010, end: 2014
  2. HUMIRA [Suspect]
     Active Substance: ADALIMUMAB
     Dosage: CITRATE FREE
     Route: 058
     Dates: start: 2020
  3. HUMIRA [Suspect]
     Active Substance: ADALIMUMAB
     Dosage: CITRATE FREE
     Route: 058

REACTIONS (5)
  - Disability [Unknown]
  - Malaise [Not Recovered/Not Resolved]
  - Protein total increased [Unknown]
  - Therapeutic product effect decreased [Unknown]
  - Tuberculosis [Recovered/Resolved]

NARRATIVE: CASE EVENT DATE: 2020
